FAERS Safety Report 21351480 (Version 11)
Quarter: 2023Q1

REPORT INFORMATION
  Report Type: Report from Study
  Country: NO (occurrence: None)
  Receive Date: 20220919
  Receipt Date: 20230119
  Transmission Date: 20230418
  Serious: Yes (Hospitalization)
  Sender: FDA-Public Use
  Company Number: NO-Eisai Medical Research-EC-2022-123503

PATIENT
  Age: 64 Year
  Sex: Male
  Weight: 63.2 kg

DRUGS (15)
  1. LENVATINIB [Suspect]
     Active Substance: LENVATINIB
     Indication: Clear cell renal cell carcinoma
     Route: 048
     Dates: start: 20211004, end: 20220824
  2. LENVATINIB [Suspect]
     Active Substance: LENVATINIB
     Route: 048
     Dates: start: 20220913, end: 20221121
  3. PEMBROLIZUMAB [Suspect]
     Active Substance: PEMBROLIZUMAB
     Indication: Clear cell renal cell carcinoma
     Route: 041
     Dates: start: 20211004, end: 20220801
  4. PEMBROLIZUMAB [Suspect]
     Active Substance: PEMBROLIZUMAB
     Route: 041
     Dates: start: 20220913, end: 20221024
  5. BELZUTIFAN [Suspect]
     Active Substance: BELZUTIFAN
     Indication: Clear cell renal cell carcinoma
     Route: 048
     Dates: start: 20211004, end: 20220829
  6. BELZUTIFAN [Suspect]
     Active Substance: BELZUTIFAN
     Route: 048
     Dates: start: 20221010, end: 20221121
  7. CIPRALEX [Concomitant]
     Active Substance: ESCITALOPRAM OXALATE
     Dates: start: 20210826, end: 20220824
  8. PANTOPRAZOLE [Concomitant]
     Active Substance: PANTOPRAZOLE
     Dates: start: 20201105
  9. OXAZEPAM [Concomitant]
     Active Substance: OXAZEPAM
     Dates: start: 20210903
  10. NYSTATIN [Concomitant]
     Active Substance: NYSTATIN
     Dates: start: 20220523, end: 20220822
  11. PREDNISOLONE [Concomitant]
     Active Substance: PREDNISOLONE
     Dates: start: 20220621, end: 20220928
  12. PIVMECILLINAM HYDROCHLORIDE [Concomitant]
     Active Substance: PIVMECILLINAM HYDROCHLORIDE
     Dates: start: 20220817, end: 20220822
  13. POTASSIUM CHLORIDE [Concomitant]
     Active Substance: POTASSIUM CHLORIDE
     Dates: start: 20220822, end: 20220829
  14. POTASSIUM CHLORIDE [Concomitant]
     Active Substance: POTASSIUM CHLORIDE
     Dates: start: 20220825, end: 20220825
  15. TITRALAC [CALCIUM CARBONATE] [Concomitant]
     Dates: start: 201801

REACTIONS (1)
  - Nausea [Recovered/Resolved]

NARRATIVE: CASE EVENT DATE: 20220825
